FAERS Safety Report 18471208 (Version 2)
Quarter: 2020Q4

REPORT INFORMATION
  Report Type: Report from Study
  Country: US (occurrence: US)
  Receive Date: 20201106
  Receipt Date: 20201117
  Transmission Date: 20210114
  Serious: Yes (Hospitalization, Other)
  Sender: FDA-Public Use
  Company Number: US-SUN PHARMACEUTICAL INDUSTRIES LTD-2020R1-265919

PATIENT
  Age: 74 Year
  Sex: Male
  Weight: 84.2 kg

DRUGS (3)
  1. INCB050465 [Suspect]
     Active Substance: PARSACLISIB HYDROCHLORIDE
     Dosage: 2.5 MILLIGRAM, QD
     Route: 048
     Dates: start: 20190925, end: 20200219
  2. BACTRIM [Suspect]
     Active Substance: SULFAMETHOXAZOLE\TRIMETHOPRIM
     Indication: PRODUCT USED FOR UNKNOWN INDICATION
     Dosage: UNK
     Route: 065
     Dates: start: 20190731
  3. INCB050465 [Suspect]
     Active Substance: PARSACLISIB HYDROCHLORIDE
     Indication: B-CELL LYMPHOMA
     Dosage: 20 MILLIGRAM, QD
     Route: 048
     Dates: start: 20190731, end: 20190924

REACTIONS (3)
  - Diarrhoea [Recovered/Resolved with Sequelae]
  - Acute kidney injury [Recovering/Resolving]
  - Hypokalaemia [Recovered/Resolved with Sequelae]

NARRATIVE: CASE EVENT DATE: 20200228
